FAERS Safety Report 18715349 (Version 1)
Quarter: 2021Q1

REPORT INFORMATION
  Report Type: Spontaneous
  Country: IN (occurrence: IN)
  Receive Date: 20210108
  Receipt Date: 20210108
  Transmission Date: 20210419
  Serious: No
  Sender: FDA-Public Use
  Company Number: IN-LUPIN LIMITED-2020-11458

PATIENT
  Age: 62 Year
  Sex: Female
  Weight: 95 kg

DRUGS (13)
  1. GLUCONORM TAB UNCOA. ER 500 MG (METFORMIN HYDROCHLORIDE) [Suspect]
     Active Substance: METFORMIN HYDROCHLORIDE
     Indication: DIABETES MELLITUS
     Dosage: 1 DOSAGE FORM, QD
     Route: 065
  2. ROZAVEL [Concomitant]
     Indication: PRODUCT USED FOR UNKNOWN INDICATION
     Dosage: UNK
     Route: 065
  3. TOZAAR [Concomitant]
     Dosage: TOZAAR 50
     Route: 065
  4. THYRONORM [Concomitant]
     Active Substance: LEVOTHYROXINE
     Indication: THYROID DISORDER
     Dosage: 1 UNK, QD
     Route: 065
  5. VIZYLAC [BACILLUS COAGULANS] [Concomitant]
     Indication: PRODUCT USED FOR UNKNOWN INDICATION
     Dosage: UNK
     Route: 065
  6. TOZAAR [Concomitant]
     Indication: BLOOD PRESSURE ABNORMAL
     Dosage: TOZAAR 25
     Route: 065
  7. CORCIUM [Concomitant]
     Indication: PRODUCT USED FOR UNKNOWN INDICATION
     Dosage: UNK
     Route: 065
  8. GLUCONORM TAB UNCOA. ER 500 MG (METFORMIN HYDROCHLORIDE) [Suspect]
     Active Substance: METFORMIN HYDROCHLORIDE
     Dosage: 1.5 DOSAGE FORM, QD
     Route: 065
  9. MAXGALIN [Concomitant]
     Dosage: MAXGALIN 75
     Route: 065
  10. RABLET [Concomitant]
     Active Substance: RABEPRAZOLE
     Indication: PRODUCT USED FOR UNKNOWN INDICATION
     Dosage: UNK
     Route: 065
  11. MAXGALIN [Concomitant]
     Indication: PRODUCT USED FOR UNKNOWN INDICATION
     Dosage: MAXGALIN 50
     Route: 065
  12. ORCERIN GM [Concomitant]
     Indication: PRODUCT USED FOR UNKNOWN INDICATION
     Dosage: UNK
     Route: 065
  13. BGR 34 [Concomitant]
     Indication: PRODUCT USED FOR UNKNOWN INDICATION
     Dosage: UNK
     Route: 065

REACTIONS (3)
  - Intentional product use issue [Unknown]
  - Wrong technique in product usage process [Unknown]
  - Blood glucose increased [Unknown]
